FAERS Safety Report 4999945-3 (Version None)
Quarter: 2006Q2

REPORT INFORMATION
  Report Type: 
  Country: None (occurrence: None)
  Receive Date: 20060509
  Receipt Date: 20060424
  Transmission Date: 20061013
  Serious: Yes (Other)
  Sender: FDA-Public Use
  Company Number: CA200604002496

PATIENT
  Age: 74 Year
  Sex: Female

DRUGS (5)
  1. FORTEO [Suspect]
     Indication: OSTEOPOROSIS
     Dosage: 20 UG DAILY(1/D)
     Dates: start: 20050324
  2. FORTEO PEN (FORTEO PEN) [Concomitant]
  3. EVISTA [Concomitant]
  4. CALCIUM CITRATE (CALCIUM CITRATE) [Concomitant]
  5. VITAMIN D [Concomitant]

REACTIONS (3)
  - COLLAGEN DISORDER [None]
  - PNEUMONITIS [None]
  - SYSTEMIC LUPUS ERYTHEMATOSUS [None]
